FAERS Safety Report 5840635-2 (Version None)
Quarter: 2008Q3

REPORT INFORMATION
  Report Type: 
  Country: None (occurrence: None)
  Receive Date: 20080811
  Receipt Date: 20080801
  Transmission Date: 20090109
  Serious: Yes (Other)
  Sender: FDA-Public Use
  Company Number: IE-ASTRAZENECA-2008GB01468

PATIENT
  Age: 59 Year
  Sex: Female

DRUGS (13)
  1. CRESTOR [Suspect]
     Indication: HYPERCHOLESTEROLAEMIA
     Route: 048
     Dates: start: 20060501, end: 20080301
  2. SERETIDE DISKUS 100 [Concomitant]
  3. FLUTICASONE PROPIONATE [Concomitant]
  4. ALBUTEROL [Concomitant]
  5. EMCOR [Concomitant]
  6. CARACE 20 PLUS [Concomitant]
  7. ACETAMINOPHEN W/ CODEINE [Concomitant]
  8. ESTROGENIC SUBSTANCE [Concomitant]
  9. LYRICA [Concomitant]
  10. BACLOFEN [Concomitant]
  11. ZOPICLONE [Concomitant]
  12. DIAZEPAM [Concomitant]
  13. QUININE [Concomitant]

REACTIONS (1)
  - POLYMYOSITIS [None]
